FAERS Safety Report 10503376 (Version 1)
Quarter: 2014Q4

REPORT INFORMATION
  Report Type: Spontaneous
  Country: US (occurrence: US)
  Receive Date: 20141008
  Receipt Date: 20141008
  Transmission Date: 20150528
  Serious: No
  Sender: FDA-Public Use
  Company Number: US-009507513-1409USA010976

PATIENT
  Age: 21 Year
  Sex: Female
  Weight: 80.73 kg

DRUGS (2)
  1. IMPLANON [Suspect]
     Active Substance: ETONOGESTREL
     Indication: BREAST FEEDING
  2. IMPLANON [Suspect]
     Active Substance: ETONOGESTREL
     Indication: CONTRACEPTION
     Dosage: EVERY 3 YEARS, 1 ROD
     Route: 059
     Dates: start: 20101215

REACTIONS (4)
  - Dizziness [Unknown]
  - Menstrual disorder [Unknown]
  - Incorrect drug administration duration [Unknown]
  - Drug administration error [Unknown]

NARRATIVE: CASE EVENT DATE: 20101215
